FAERS Safety Report 11785850 (Version 1)
Quarter: 2015Q4

REPORT INFORMATION
  Report Type: Spontaneous
  Country: US (occurrence: None)
  Receive Date: 20151125
  Receipt Date: 20151125
  Transmission Date: 20160305
  Serious: Yes (Other)
  Sender: FDA-Public Use
  Company Number: None

PATIENT
  Sex: Female

DRUGS (1)
  1. LANTUS SOLOSTAR [Suspect]
     Active Substance: INSULIN GLARGINE
     Dosage: 80 UNITS  QHS/BEDTIME SUBCUTANEOUS
     Route: 058

REACTIONS (4)
  - Injection site mass [None]
  - Device failure [None]
  - Injection site haemorrhage [None]
  - Device malfunction [None]
